FAERS Safety Report 4511874-8 (Version None)
Quarter: 2004Q4

REPORT INFORMATION
  Report Type: 
  Country: None (occurrence: None)
  Receive Date: 20041123
  Receipt Date: 20041105
  Transmission Date: 20050328
  Serious: Yes (Hospitalization)
  Sender: FDA-Public Use
  Company Number: 1701

PATIENT
  Age: 38 Year
  Sex: Male
  Weight: 190 kg

DRUGS (3)
  1. AVINZA [Suspect]
     Indication: BACK PAIN
     Dosage: 30 MG QD PO
     Route: 048
     Dates: start: 20041027, end: 20041028
  2. GLUCOPHAGE [Suspect]
  3. NMETFORMIN [Concomitant]

REACTIONS (4)
  - COMA [None]
  - DRUG INTERACTION [None]
  - GASTRIC DILATATION [None]
  - RENAL FAILURE [None]
